FAERS Safety Report 22304647 (Version 2)
Quarter: 2023Q2

REPORT INFORMATION
  Report Type: Spontaneous
  Country: US (occurrence: US)
  Receive Date: 20230510
  Receipt Date: 20230518
  Transmission Date: 20230721
  Serious: Yes (Other)
  Sender: FDA-Public Use
  Company Number: US-Calliditas-2023CAL00408

PATIENT
  Age: 36 Year
  Sex: Male

DRUGS (1)
  1. TARPEYO [Suspect]
     Active Substance: BUDESONIDE
     Indication: IgA nephropathy
     Route: 048
     Dates: start: 20230204, end: 20230407

REACTIONS (2)
  - End stage renal disease [Unknown]
  - Renal transplant [Recovered/Resolved]

NARRATIVE: CASE EVENT DATE: 20230407
